FAERS Safety Report 11028378 (Version 1)
Quarter: 2015Q2

REPORT INFORMATION
  Report Type: Spontaneous
  Country: GB (occurrence: GB)
  Receive Date: 20150414
  Receipt Date: 20150414
  Transmission Date: 20150821
  Serious: Yes (Death, Hospitalization)
  Sender: FDA-Public Use
  Company Number: GB-BAUSCH-BL-2015-010729

PATIENT
  Age: 79 Year
  Sex: Female

DRUGS (5)
  1. NYSTATIN. [Concomitant]
     Active Substance: NYSTATIN
     Indication: PRODUCT USED FOR UNKNOWN INDICATION
  2. BONJELA [Concomitant]
     Active Substance: CETALKONIUM CHLORIDE\CHOLINE SALICYLATE\MENTHOL
     Indication: PRODUCT USED FOR UNKNOWN INDICATION
  3. PREDNISOLONE. [Suspect]
     Active Substance: PREDNISOLONE
     Indication: ANTINEUTROPHIL CYTOPLASMIC ANTIBODY POSITIVE
     Route: 048
  4. COTRIMOXAZOLE [Concomitant]
     Active Substance: SULFAMETHOXAZOLE\TRIMETHOPRIM
     Indication: PROPHYLAXIS
  5. CYCLOPHOSPHAMIDE. [Suspect]
     Active Substance: CYCLOPHOSPHAMIDE
     Indication: ANTINEUTROPHIL CYTOPLASMIC ANTIBODY POSITIVE
     Route: 065

REACTIONS (3)
  - Herpes simplex [Fatal]
  - Cytomegalovirus infection [Fatal]
  - Renal failure [Fatal]
